FAERS Safety Report 7478121-9 (Version None)
Quarter: 2011Q2

REPORT INFORMATION
  Report Type: 
  Country: None (occurrence: None)
  Receive Date: 20110505
  Receipt Date: 20110421
  Transmission Date: 20111010
  Serious: Yes (Other)
  Sender: FDA-Public Use
  Company Number: 031736

PATIENT
  Sex: Female

DRUGS (2)
  1. FLUTICASONE PROPIONATE [Concomitant]
  2. CIMZIA [Suspect]
     Indication: RHEUMATOID ARTHRITIS
     Dosage: (SUBCUTANEOUS)
     Route: 058
     Dates: start: 20101118, end: 20110321

REACTIONS (3)
  - PRURITUS [None]
  - EYE SWELLING [None]
  - SWELLING FACE [None]
